FAERS Safety Report 6917260-5 (Version None)
Quarter: 2010Q3

REPORT INFORMATION
  Report Type: 
  Country: None (occurrence: None)
  Receive Date: 20100810
  Receipt Date: 20100803
  Transmission Date: 20110219
  Serious: Yes (Disabling)
  Sender: FDA-Public Use
  Company Number: US-MERCK-1008USA00381

PATIENT
  Sex: Female

DRUGS (1)
  1. MEVACOR [Suspect]
     Route: 048

REACTIONS (6)
  - ARTHROPATHY [None]
  - FALL [None]
  - FOOT FRACTURE [None]
  - MOVEMENT DISORDER [None]
  - MUSCULOSKELETAL STIFFNESS [None]
  - PAIN IN EXTREMITY [None]
